FAERS Safety Report 8155964-X (Version None)
Quarter: 2012Q1

REPORT INFORMATION
  Report Type: 
  Country: None (occurrence: None)
  Receive Date: 20120216
  Receipt Date: 20120203
  Transmission Date: 20120608
  Serious: Yes (Death)
  Sender: FDA-Public Use
  Company Number: JP-2012-10216

PATIENT
  Age: 62 Year
  Sex: Male

DRUGS (6)
  1. PLETAL [Suspect]
     Indication: ACUTE MYOCARDIAL INFARCTION
     Dosage: UNK, ORAL
     Route: 048
     Dates: start: 20111220, end: 20111225
  2. ASPIRIN [Concomitant]
  3. BISOPOL (BISOPROLOL HEMIFUMARATE) [Concomitant]
  4. CLOPIDOGREL [Concomitant]
  5. VALSARTAN [Concomitant]
  6. ISOSORBIDE DINITRATE [Concomitant]

REACTIONS (3)
  - HAEMOPTYSIS [None]
  - PULMONARY HAEMORRHAGE [None]
  - DYSPNOEA [None]
